FAERS Safety Report 25757363 (Version 1)
Quarter: 2025Q3

REPORT INFORMATION
  Report Type: Report from Study
  Country: TR (occurrence: TR)
  Receive Date: 20250903
  Receipt Date: 20250903
  Transmission Date: 20251020
  Serious: Yes (Other)
  Sender: NOVO NORDISK
  Company Number: TR-NOVOPROD-1509827

PATIENT
  Age: 41 Year
  Sex: Female
  Weight: 78 kg

DRUGS (6)
  1. MATOFIN [Concomitant]
     Indication: Product used for unknown indication
     Dosage: 500 MG, QD
  2. TARDEN [Concomitant]
     Indication: Product used for unknown indication
     Dosage: 40 MG, QD
  3. TEGRETOL XR [Concomitant]
     Active Substance: CARBAMAZEPINE
     Indication: Product used for unknown indication
     Dosage: 200 MG, QD
  4. JARDIANCE [Concomitant]
     Active Substance: EMPAGLIFLOZIN
     Indication: Product used for unknown indication
     Dosage: 10 MG, QD
  5. INSULIN ASPART\INSULIN DEGLUDEC [Suspect]
     Active Substance: INSULIN ASPART\INSULIN DEGLUDEC
     Indication: Type 1 diabetes mellitus
     Dosage: 45 IU, QD (20 UNITS IN THE MORNING AND 25 UNITS IN THE EVENING)
  6. NOVORAPID [Suspect]
     Active Substance: INSULIN ASPART
     Indication: Type 1 diabetes mellitus
     Dosage: 8 IU, QD

REACTIONS (3)
  - Blood glucose increased [Unknown]
  - Somnolence [Unknown]
  - Device delivery system issue [Unknown]
